FAERS Safety Report 8841896 (Version 1)
Quarter: 2012Q4

REPORT INFORMATION
  Report Type: Spontaneous
  Country: US (occurrence: None)
  Receive Date: 20121016
  Receipt Date: 20121016
  Transmission Date: 20130627
  Serious: Yes (Other)
  Sender: FDA-Public Use
  Company Number: None

PATIENT
  Age: 50 Year
  Sex: Female
  Weight: 52.62 kg

DRUGS (4)
  1. METHYLPREDNISOLONE [Suspect]
     Indication: ROTATOR CUFF SYNDROME
     Dates: start: 20120618, end: 20120618
  2. METHYLPREDNISOLONE [Suspect]
     Indication: INJURY
     Dates: start: 20120618, end: 20120618
  3. LIDOCAINE/BIPUVICAINE 2CC/2CC [Concomitant]
     Dosage: 2cc/2cc once
     Dates: start: 20120618, end: 20120618
  4. DEPO MEDROL [Concomitant]

REACTIONS (16)
  - No therapeutic response [None]
  - Feeling abnormal [None]
  - Confusional state [None]
  - Back pain [None]
  - Pain in jaw [None]
  - Palpitations [None]
  - Pyrexia [None]
  - Dysphonia [None]
  - Insomnia [None]
  - Muscle spasms [None]
  - Hypertension [None]
  - Anxiety [None]
  - Dyspnoea [None]
  - Visual acuity reduced [None]
  - Muscular weakness [None]
  - Migraine [None]
